FAERS Safety Report 21382093 (Version 8)
Quarter: 2023Q2

REPORT INFORMATION
  Report Type: Report from Study
  Country: JP (occurrence: JP)
  Receive Date: 20220927
  Receipt Date: 20230414
  Transmission Date: 20230721
  Serious: Yes (Hospitalization)
  Sender: FDA-Public Use
  Company Number: JP-JNJFOC-20220946733

PATIENT
  Age: 52 Year
  Sex: Female
  Weight: 52.7 kg

DRUGS (13)
  1. AMIVANTAMAB [Suspect]
     Active Substance: AMIVANTAMAB
     Indication: Non-small cell lung cancer metastatic
     Route: 042
     Dates: start: 20220915, end: 20220916
  2. CARBOPLATIN [Suspect]
     Active Substance: CARBOPLATIN
     Indication: Non-small cell lung cancer metastatic
     Route: 042
     Dates: start: 20220915, end: 20220915
  3. PEMETREXED [Suspect]
     Active Substance: PEMETREXED
     Indication: Non-small cell lung cancer metastatic
     Route: 042
     Dates: start: 20220915, end: 20220915
  4. HEPARINOID [Concomitant]
     Indication: Paronychia
     Dosage: DOSE:1 (DOSAGE UNIT NOT PROVIDED)
     Route: 061
     Dates: start: 20200508
  5. HEPARINOID [Concomitant]
     Dosage: DOSE: 1 (DOSAGE UNIT NOT PROVIDED)
     Route: 061
     Dates: start: 20220508
  6. NIFEDIPINE [Concomitant]
     Active Substance: NIFEDIPINE
     Indication: Hypertension
     Route: 048
     Dates: start: 20200801
  7. AZILSARTAN KAMEDOXOMIL [Concomitant]
     Active Substance: AZILSARTAN KAMEDOXOMIL
     Indication: Hypertension
     Route: 048
     Dates: start: 20200801
  8. CODEINE PHOSPHATE [Concomitant]
     Active Substance: CODEINE PHOSPHATE
     Indication: Cough
     Route: 048
     Dates: start: 20220909
  9. PRIMPERAN [Concomitant]
     Active Substance: METOCLOPRAMIDE HYDROCHLORIDE
     Indication: Prophylaxis of nausea and vomiting
     Route: 048
     Dates: start: 20220915
  10. OXYGEN [Concomitant]
     Active Substance: OXYGEN
     Indication: Dyspnoea
     Route: 055
     Dates: start: 20220915, end: 20220915
  11. SULPIRIDE [Concomitant]
     Active Substance: SULPIRIDE
     Indication: Depression
     Route: 048
     Dates: start: 20220101
  12. DAYVIGO [Concomitant]
     Active Substance: LEMBOREXANT
     Indication: Depression
     Route: 048
     Dates: start: 20220101
  13. REXULTI [Concomitant]
     Active Substance: BREXPIPRAZOLE
     Indication: Depression
     Route: 048
     Dates: start: 20220101

REACTIONS (3)
  - Alanine aminotransferase increased [Not Recovered/Not Resolved]
  - Neutropenia [Recovered/Resolved]
  - Thrombocytopenia [Recovered/Resolved]

NARRATIVE: CASE EVENT DATE: 20220921
